FAERS Safety Report 4646817-X (Version None)
Quarter: 2005Q2

REPORT INFORMATION
  Report Type: 
  Country: None (occurrence: None)
  Receive Date: 20050331
  Receipt Date: 20050224
  Transmission Date: 20051028
  Serious: No
  Sender: FDA-Public Use
  Company Number: 04P-163-0263646-00

PATIENT
  Age: 74 Year
  Sex: Female
  Weight: 73.4827 kg

DRUGS (9)
  1. HUMIRA [Suspect]
     Indication: RHEUMATOID ARTHRITIS
     Dosage: 40 MG, 1 IN 2 WK, SUBCUTANEOUS;  40 MG, 1 IN 1 WK, SUBCUTANEOUS
     Route: 058
     Dates: start: 20030101, end: 20040601
  2. HUMIRA [Suspect]
     Indication: RHEUMATOID ARTHRITIS
     Dosage: 40 MG, 1 IN 2 WK, SUBCUTANEOUS;  40 MG, 1 IN 1 WK, SUBCUTANEOUS
     Route: 058
     Dates: start: 20040601
  3. LEFLUNOMIDE [Concomitant]
  4. PREDNISONE TAB [Concomitant]
  5. THYROID TAB [Concomitant]
  6. CARBAMAZEPINE [Concomitant]
  7. RISEDRONATE SODIUM [Concomitant]
  8. DONNATAL [Concomitant]
  9. PARACETAMOL [Concomitant]

REACTIONS (9)
  - DRUG INEFFECTIVE [None]
  - FATIGUE [None]
  - INJECTION SITE IRRITATION [None]
  - INJECTION SITE PRURITUS [None]
  - INJECTION SITE RASH [None]
  - MUSCULOSKELETAL STIFFNESS [None]
  - MYALGIA [None]
  - RED BLOOD CELL SEDIMENTATION RATE INCREASED [None]
  - RHEUMATOID ARTHRITIS [None]
